FAERS Safety Report 14555219 (Version 1)
Quarter: 2018Q1

REPORT INFORMATION
  Report Type: Spontaneous
  Country: US (occurrence: US)
  Receive Date: 20180219
  Receipt Date: 20180219
  Transmission Date: 20180509
  Serious: Yes (Death)
  Sender: FDA-Public Use
  Company Number: None

PATIENT
  Age: 50 Year
  Sex: Female
  Weight: 88.2 kg

DRUGS (10)
  1. GAS-X [Concomitant]
     Active Substance: DIMETHICONE
  2. ENTECAVIR. [Concomitant]
     Active Substance: ENTECAVIR
  3. MULTIVITAL [Concomitant]
  4. LASIX [Concomitant]
     Active Substance: FUROSEMIDE
  5. IBRANCE [Suspect]
     Active Substance: PALBOCICLIB
     Indication: BREAST CANCER
     Route: 048
     Dates: start: 20171207, end: 20180129
  6. TRAZODONE [Concomitant]
     Active Substance: TRAZODONE HYDROCHLORIDE
  7. IBUPROFEN. [Concomitant]
     Active Substance: IBUPROFEN
  8. LACTULOSE. [Concomitant]
     Active Substance: LACTULOSE
  9. SPIRINOLACTONE [Concomitant]
  10. OXYCODONE [Concomitant]
     Active Substance: OXYCODONE

REACTIONS (1)
  - Disease progression [None]

NARRATIVE: CASE EVENT DATE: 20180216
